FAERS Safety Report 7659214-X (Version None)
Quarter: 2011Q3

REPORT INFORMATION
  Report Type: 
  Country: None (occurrence: None)
  Receive Date: 20110805
  Receipt Date: 20110803
  Transmission Date: 20111222
  Serious: Yes (Life-Threatening, Hospitalization)
  Sender: FDA-Public Use
  Company Number: BR-ABBOTT-11P-020-0841029-00

PATIENT
  Sex: Female
  Weight: 71.5 kg

DRUGS (6)
  1. TEGRETOL [Concomitant]
     Indication: EPILEPSY
     Route: 048
  2. CARBAMAZEPINE [Concomitant]
     Indication: PRODUCT USED FOR UNKNOWN INDICATION
     Dosage: 1000 MG DAILY
  3. PHENOBARBITAL TAB [Concomitant]
     Indication: EPILEPSY
     Dosage: 200 MG DAILY
  4. HALDOL [Concomitant]
     Indication: DEPRESSION
     Dosage: 10 MG DAILY
     Route: 048
  5. AKINETON [Suspect]
     Indication: COORDINATION ABNORMAL
     Dosage: 4 MG DAILY
     Route: 048
  6. DIAZEPAM [Concomitant]
     Indication: DEPRESSION
     Dosage: 1.5 TABLET DAILY
     Route: 048

REACTIONS (10)
  - CONFUSIONAL STATE [None]
  - SUICIDE ATTEMPT [None]
  - COORDINATION ABNORMAL [None]
  - CONSTIPATION [None]
  - WEIGHT INCREASED [None]
  - RASH [None]
  - PRURITUS [None]
  - SOMNOLENCE [None]
  - HAEMATOCHEZIA [None]
  - URINARY RETENTION [None]
